FAERS Safety Report 23577398 (Version 2)
Quarter: 2024Q1

REPORT INFORMATION
  Report Type: Spontaneous
  Country: CN (occurrence: CN)
  Receive Date: 20240228
  Receipt Date: 20240308
  Transmission Date: 20240409
  Serious: Yes (Hospitalization)
  Sender: FDA-Public Use
  Company Number: CN-BoehringerIngelheim-2024-BI-011184

PATIENT
  Age: 72 Year
  Sex: Male
  Weight: 65 kg

DRUGS (2)
  1. PRADAXA [Suspect]
     Active Substance: DABIGATRAN ETEXILATE MESYLATE
     Indication: Atrial fibrillation
     Dosage: THE LATEST BATCH NUMBER OF PRADAXA IS 201982.
     Route: 048
     Dates: start: 2016
  2. Metoprolol Succinate Sustained-release Tablets [Concomitant]
     Indication: Hypertension

REACTIONS (1)
  - CSF protein increased [Recovering/Resolving]

NARRATIVE: CASE EVENT DATE: 20240101
